FAERS Safety Report 8118765-4 (Version None)
Quarter: 2012Q1

REPORT INFORMATION
  Report Type: 
  Country: None (occurrence: None)
  Receive Date: 20120207
  Receipt Date: 20120130
  Transmission Date: 20120608
  Serious: Yes (Hospitalization)
  Sender: FDA-Public Use
  Company Number: US-US-EMD SERONO, INC.-7110421

PATIENT
  Sex: Female

DRUGS (3)
  1. LYRICA [Concomitant]
     Indication: TRIGEMINAL NEURALGIA
  2. REBIF [Suspect]
     Indication: PRODUCT USED FOR UNKNOWN INDICATION
     Route: 058
     Dates: start: 20111123
  3. KEPPRA [Concomitant]
     Indication: TRIGEMINAL NEURALGIA

REACTIONS (6)
  - INJECTION SITE ERYTHEMA [None]
  - INJECTION SITE NODULE [None]
  - SOMNOLENCE [None]
  - HYPOAESTHESIA [None]
  - CONVULSION [None]
  - BRONCHITIS [None]
